FAERS Safety Report 9333649 (Version 1)
Quarter: 2013Q2

REPORT INFORMATION
  Report Type: Spontaneous
  Country: US (occurrence: US)
  Receive Date: 20130606
  Receipt Date: 20130606
  Transmission Date: 20140414
  Serious: Yes (Other)
  Sender: FDA-Public Use
  Company Number: US-JNJFOC-2008025241

PATIENT
  Sex: Female

DRUGS (8)
  1. IBUPROFEN [Suspect]
     Route: 065
  2. IBUPROFEN [Suspect]
     Indication: ANALGESIC THERAPY
     Route: 065
  3. FLEXERIL [Suspect]
     Indication: ANALGESIC THERAPY
     Route: 065
  4. EXTRA STRENGTH TYLENOL PM [Suspect]
     Indication: PRODUCT USED FOR UNKNOWN INDICATION
     Route: 065
  5. PERCOCET [Interacting]
     Indication: ANALGESIC THERAPY
     Route: 065
  6. DARVOCET [Interacting]
     Indication: ANALGESIC THERAPY
     Route: 065
  7. VICODIN [Interacting]
     Indication: ANALGESIC THERAPY
     Route: 065
  8. CHANTIX [Interacting]
     Indication: PRODUCT USED FOR UNKNOWN INDICATION
     Route: 065
     Dates: start: 200711

REACTIONS (7)
  - Procedural complication [Unknown]
  - Endodontic procedure [Unknown]
  - Artificial crown procedure [Recovered/Resolved]
  - Drug ineffective [Unknown]
  - Drug administration error [Unknown]
  - Toothache [Recovered/Resolved]
  - Drug interaction [Recovered/Resolved]
